FAERS Safety Report 7069295-2 (Version None)
Quarter: 2010Q4

REPORT INFORMATION
  Report Type: 
  Country: None (occurrence: None)
  Receive Date: 20101028
  Receipt Date: 20101019
  Transmission Date: 20110411
  Serious: Yes (Other)
  Sender: FDA-Public Use
  Company Number: US-ASTRAZENECA-2010SE47138

PATIENT

DRUGS (4)
  1. CRESTOR [Suspect]
     Route: 048
  2. METOPROLOL [Concomitant]
  3. LISINOPRIL [Concomitant]
  4. LORTAB [Concomitant]

REACTIONS (2)
  - BLOOD CREATINE PHOSPHOKINASE INCREASED [None]
  - RENAL FAILURE [None]
